FAERS Safety Report 5897551-X (Version None)
Quarter: 2008Q3

REPORT INFORMATION
  Report Type: 
  Country: None (occurrence: None)
  Receive Date: 20080925
  Receipt Date: 20080917
  Transmission Date: 20090109
  Serious: Yes (Hospitalization)
  Sender: FDA-Public Use
  Company Number: US-BAYER-200832336NA

PATIENT
  Age: 80 Year
  Sex: Male
  Weight: 77 kg

DRUGS (29)
  1. SORAFENIB VERSUS PLACEBO [Suspect]
     Indication: NON-SMALL CELL LUNG CANCER
     Dosage: TOTAL DAILY DOSE: 800 MG  UNIT DOSE: 200 MG
     Route: 048
     Dates: start: 20080730, end: 20080827
  2. ERLOTINIB [Suspect]
     Indication: NON-SMALL CELL LUNG CANCER
     Dosage: TOTAL DAILY DOSE: 150 MG
     Route: 048
     Dates: start: 20080730, end: 20080827
  3. OXYGEN [Concomitant]
  4. ACCUPRIL [Concomitant]
     Dosage: UNIT DOSE: 20 MG
     Route: 048
     Dates: start: 20080107, end: 20080830
  5. ALLOPURINOL [Concomitant]
     Dosage: UNIT DOSE: 300 MG
     Route: 048
     Dates: start: 20080107
  6. ALLOPURINOL [Concomitant]
     Dosage: TOTAL DAILY DOSE: 100 MG
     Route: 048
     Dates: start: 20080728
  7. CYANOCOBALAMIN [Concomitant]
     Dosage: AS USED: 1000 ?G  UNIT DOSE: 1000 ?G
     Route: 048
     Dates: start: 20080430
  8. CYANOCOBALAMIN [Concomitant]
     Dosage: UNIT DOSE: 1000 ?G
     Route: 048
     Dates: start: 20080107
  9. EFFEXOR [Concomitant]
     Dosage: TOTAL DAILY DOSE: 75 MG  UNIT DOSE: 75 MG
     Route: 048
     Dates: start: 20080107
  10. LASIX [Concomitant]
     Dosage: TOTAL DAILY DOSE: 40 MG  UNIT DOSE: 40 MG
     Route: 048
     Dates: start: 20080107, end: 20080830
  11. LORTAB [Concomitant]
     Route: 048
     Dates: start: 20080805
  12. PEPCID [Concomitant]
     Dosage: UNIT DOSE: 20 MG
     Route: 048
     Dates: start: 20080404
  13. PHENERGAN HCL [Concomitant]
     Dosage: UNIT DOSE: 25 MG
     Route: 048
     Dates: start: 20080107
  14. POTASSIUM CHLORIDE [Concomitant]
     Dosage: UNIT DOSE: 20 MEQ
     Route: 048
     Dates: start: 20080107
  15. POTASSIUM CHLORIDE [Concomitant]
     Dosage: TOTAL DAILY DOSE: 20 MEQ  UNIT DOSE: 20 MEQ
     Route: 048
     Dates: start: 20080430
  16. TOPROL-XL [Concomitant]
     Dosage: TOTAL DAILY DOSE: 50 MG  UNIT DOSE: 50 MG
     Route: 048
     Dates: start: 20080107
  17. ZOCOR [Concomitant]
     Dosage: TOTAL DAILY DOSE: 40 MG  UNIT DOSE: 40 MG
     Route: 048
     Dates: start: 20080107
  18. DECADRON SRC [Concomitant]
     Dosage: TOTAL DAILY DOSE: 4 MG  UNIT DOSE: 4 MG
     Route: 048
     Dates: start: 20080829, end: 20080830
  19. DECADRON SRC [Concomitant]
     Dosage: TOTAL DAILY DOSE: 8 MG  UNIT DOSE: 4 MG
     Route: 048
     Dates: start: 20080827, end: 20080829
  20. DECADRON SRC [Concomitant]
     Dosage: TOTAL DAILY DOSE: 1 MG
     Route: 048
     Dates: start: 20080830
  21. TUSSIONEX [Concomitant]
     Indication: COUGH
     Route: 048
     Dates: start: 20080728
  22. AMBIEN [Concomitant]
     Indication: SLEEP DISORDER
     Route: 048
     Dates: start: 20080902
  23. ACETAMINOPHEN AND HYDROCODONE BITARTRATE [Concomitant]
     Indication: PAIN
     Dates: start: 20080107
  24. ROCEPHIN [Concomitant]
     Dosage: TOTAL DAILY DOSE: 1 G
     Route: 042
     Dates: start: 20080828, end: 20080830
  25. ZITHROMAX [Concomitant]
     Dosage: TOTAL DAILY DOSE: 500 MG
     Route: 042
     Dates: start: 20080827, end: 20080830
  26. LOVENOX [Concomitant]
     Route: 058
     Dates: start: 20080828, end: 20080830
  27. POTASSIUM CHLORIDE [Concomitant]
  28. STRESSTABS/IRON [Concomitant]
  29. MULTIPLE VITAMIN [Concomitant]

REACTIONS (3)
  - ARRHYTHMIA SUPRAVENTRICULAR [None]
  - ATRIAL FIBRILLATION [None]
  - DYSPNOEA [None]
